FAERS Safety Report 17978121 (Version 1)
Quarter: 2020Q3

REPORT INFORMATION
  Report Type: Spontaneous
  Country: None (occurrence: US)
  Receive Date: 20200703
  Receipt Date: 20200703
  Transmission Date: 20201103
  Serious: Yes (Death, Life-Threatening, Hospitalization, Other)
  Sender: FDA-Public Use
  Company Number: US-ORION CORPORATION ORION PHARMA-20_00009617

PATIENT
  Age: 61 Year
  Sex: Male

DRUGS (10)
  1. ANTITHYMOCYTE IMMUNOGLOBULIN [Suspect]
     Active Substance: THYMOCYTE IMMUNE GLOBULIN NOS
     Indication: PROPHYLAXIS AGAINST GRAFT VERSUS HOST DISEASE
     Route: 065
  2. PREDNISONE. [Suspect]
     Active Substance: PREDNISONE
     Dosage: STEROID TAPER
     Route: 065
  3. SULFAMETHOXAZOLE [Concomitant]
     Active Substance: SULFAMETHOXAZOLE
     Indication: ANTIFUNGAL PROPHYLAXIS
     Route: 065
  4. TACROLIMUS. [Suspect]
     Active Substance: TACROLIMUS
     Indication: PROPHYLAXIS AGAINST GRAFT VERSUS HOST DISEASE
     Route: 065
  5. TRIMETHOPRIM. [Concomitant]
     Active Substance: TRIMETHOPRIM
     Indication: ANTIFUNGAL PROPHYLAXIS
     Route: 065
  6. SULFAMETHOXAZOLE [Concomitant]
     Active Substance: SULFAMETHOXAZOLE
     Indication: ANTIFUNGAL PROPHYLAXIS
  7. METHOTREXATE. [Suspect]
     Active Substance: METHOTREXATE
     Indication: PROPHYLAXIS AGAINST GRAFT VERSUS HOST DISEASE
     Route: 065
  8. RUXOLITINIB [Suspect]
     Active Substance: RUXOLITINIB
     Indication: ACUTE GRAFT VERSUS HOST DISEASE IN SKIN
     Route: 065
  9. PENTAMIDINE [Concomitant]
     Active Substance: PENTAMIDINE
     Indication: ANTIFUNGAL PROPHYLAXIS
     Route: 055
  10. PREDNISONE. [Suspect]
     Active Substance: PREDNISONE
     Indication: ACUTE GRAFT VERSUS HOST DISEASE IN SKIN
     Route: 065

REACTIONS (18)
  - Drug ineffective for unapproved indication [Unknown]
  - Staphylococcal bacteraemia [Unknown]
  - Product use in unapproved indication [Unknown]
  - Joint effusion [Unknown]
  - Pulmonary mass [Unknown]
  - Pulmonary necrosis [Unknown]
  - Infectious thyroiditis [Recovered/Resolved]
  - Death [Fatal]
  - Stenotrophomonas infection [Unknown]
  - Myopathy [Unknown]
  - Staphylococcal infection [Unknown]
  - Graft versus host disease in skin [Unknown]
  - Respiratory syncytial virus infection [Unknown]
  - Thyroid gland abscess [Recovered/Resolved]
  - Epstein-Barr viraemia [Unknown]
  - Pulmonary nocardiosis [Recovered/Resolved]
  - Skin bacterial infection [Unknown]
  - Osteomyelitis [Unknown]
